FAERS Safety Report 5588505-1 (Version None)
Quarter: 2008Q1

REPORT INFORMATION
  Report Type: 
  Country: None (occurrence: None)
  Receive Date: 20080111
  Receipt Date: 20080102
  Transmission Date: 20080703
  Serious: Yes (Death)
  Sender: FDA-Public Use
  Company Number: FR-ROCHE-415971

PATIENT
  Age: 61 Year
  Sex: Male

DRUGS (2)
  1. LARIAM [Suspect]
     Indication: DRUG USE FOR UNKNOWN INDICATION
     Route: 048
     Dates: start: 19970615
  2. ENGERIX-B [Suspect]
     Indication: DRUG USE FOR UNKNOWN INDICATION
     Dosage: FORM: INHALATION SOLUTION, THE PATIENT RECEIVED THREE INJECTIONS IN 1995 (MARCH, APRIL AND SEPTEMBE+
     Route: 030
     Dates: start: 19950303, end: 19950907

REACTIONS (2)
  - AMYOTROPHY [None]
  - UPPER MOTOR NEURONE LESION [None]
